FAERS Safety Report 8667455 (Version 3)
Quarter: 2012Q4

REPORT INFORMATION
  Report Type: 
  Country: BR (occurrence: BR)
  Receive Date: 20120717
  Receipt Date: 20120828
  Transmission Date: 20130627
  Serious: Yes (Other)
  Sender: FDA-Public Use
  Company Number: BR-SANOFI-AVENTIS-2012SA048182

PATIENT
  Age: 71 Year
  Sex: Male
  Weight: 54.3 kg

DRUGS (5)
  1. JEVTANA [Suspect]
     Indication: PROSTATE CANCER
     Route: 065
     Dates: start: 20120613, end: 20120613
  2. DEXAMETHASONE [Concomitant]
     Dates: start: 201207
  3. KYTRIL [Concomitant]
     Dates: start: 201207
  4. DIPHENHYDRAMINE [Concomitant]
     Dates: start: 201207
  5. RANITIDINE [Concomitant]
     Dates: start: 201207

REACTIONS (6)
  - Extravasation [Recovered/Resolved]
  - Hyperaemia [Recovered/Resolved]
  - Hypoaesthesia [Not Recovered/Not Resolved]
  - Pain in extremity [Recovered/Resolved]
  - Paraesthesia [Recovered/Resolved]
  - Infusion site discolouration [Not Recovered/Not Resolved]
